FAERS Safety Report 5964129-9 (Version None)
Quarter: 2008Q4

REPORT INFORMATION
  Report Type: 
  Country: None (occurrence: None)
  Receive Date: 20081124
  Receipt Date: 20081114
  Transmission Date: 20090506
  Serious: No
  Sender: FDA-Public Use
  Company Number: US-B.I. PHARMACEUTICALS,INC./RIDGEFIELD-2008-BP-16494BP

PATIENT
  Sex: Female

DRUGS (17)
  1. SPIRIVA [Suspect]
     Indication: CHRONIC OBSTRUCTIVE PULMONARY DISEASE
     Dosage: 36MCG
     Route: 055
  2. SPIRIVA [Suspect]
     Indication: EMPHYSEMA
  3. LANOXIN [Concomitant]
     Dosage: .25MG
  4. ASPIRIN [Concomitant]
     Dosage: 81MG
  5. ASCORBIC ACID [Concomitant]
     Dosage: 1000MG
  6. THERAGRAM VITAMIN [Concomitant]
  7. CELEBREX [Concomitant]
     Dosage: 200MG
  8. FUROSEMIDE [Concomitant]
     Dosage: 20MG
  9. CALCIUM AND VITAMIN D [Concomitant]
  10. CHOLCHESINE [Concomitant]
  11. ADVAIR DISKUS 100/50 [Concomitant]
     Route: 055
  12. LIPITOR [Concomitant]
     Dosage: 10MG
  13. ALTACE [Concomitant]
     Dosage: 1.25MG
  14. ZETIA [Concomitant]
     Dosage: 5MG
  15. NIASPAN [Concomitant]
     Dosage: 500MG
  16. LOVAXA [Concomitant]
     Dosage: 1G
  17. FOSAMAX [Concomitant]

REACTIONS (1)
  - CATARACT [None]
